FAERS Safety Report 18057897 (Version 2)
Quarter: 2020Q4

REPORT INFORMATION
  Report Type: Spontaneous
  Country: FR (occurrence: FR)
  Receive Date: 20200723
  Receipt Date: 20201210
  Transmission Date: 20210113
  Serious: Yes (Death)
  Sender: FDA-Public Use
  Company Number: FR-TEVA-2020-FR-1803195

PATIENT
  Age: 88 Year
  Sex: Female

DRUGS (4)
  1. FLUCONAZOLE. [Suspect]
     Active Substance: FLUCONAZOLE
     Indication: CANDIDA INFECTION
     Dosage: UNSPECIFIED
     Route: 048
     Dates: start: 20200629
  2. OXYNORM [Interacting]
     Active Substance: OXYCODONE HYDROCHLORIDE
     Indication: PAIN
     Dosage: UNSPECIFIED
     Route: 048
     Dates: start: 20200615
  3. INNOHEP [Suspect]
     Active Substance: TINZAPARIN SODIUM
     Indication: PROPHYLAXIS
     Dosage: 8000 IU
     Route: 058
     Dates: start: 20200625
  4. DIFICLIR 200 MG, COMPRIME PELLICULE [Suspect]
     Active Substance: FIDAXOMICIN
     Indication: CLOSTRIDIUM DIFFICILE COLITIS
     Dosage: UNSPECIFIED, DIFICLIR 200 MG, COMPRIME PELLICULE
     Route: 048
     Dates: start: 20200627

REACTIONS (4)
  - Hypokalaemia [Fatal]
  - Confusional state [Fatal]
  - Drug interaction [Fatal]
  - Hyponatraemia [Fatal]

NARRATIVE: CASE EVENT DATE: 202006
